FAERS Safety Report 7600763-8 (Version None)
Quarter: 2011Q3

REPORT INFORMATION
  Report Type: 
  Country: None (occurrence: None)
  Receive Date: 20110711
  Receipt Date: 20110630
  Transmission Date: 20111222
  Serious: Yes (Life-Threatening, Hospitalization, Other)
  Sender: FDA-Public Use
  Company Number: JP-CELGENEUS-087-21880-10080457

PATIENT
  Sex: Male
  Weight: 54 kg

DRUGS (7)
  1. NEUPOGEN [Concomitant]
     Indication: MULTIPLE MYELOMA
     Dosage: 75 MICROGRAM
     Route: 058
     Dates: start: 20100729, end: 20100812
  2. REVLIMID [Suspect]
     Dosage: 5 MILLIGRAM
     Route: 048
     Dates: start: 20100819, end: 20100829
  3. DEXAMETHASONE [Concomitant]
     Dosage: 40 MILLIGRAM
     Route: 041
     Dates: start: 20100828, end: 20100828
  4. DEXAMETHASONE [Suspect]
     Indication: MULTIPLE MYELOMA
     Dosage: 40 MILLIGRAM
     Route: 048
     Dates: start: 20100724, end: 20100731
  5. REVLIMID [Suspect]
     Indication: MULTIPLE MYELOMA
     Dosage: 25 MILLIGRAM
     Route: 048
     Dates: start: 20100723, end: 20100802
  6. DEXAMETHASONE [Concomitant]
     Indication: MULTIPLE MYELOMA
     Dosage: 40 MILLIGRAM
     Route: 041
     Dates: start: 20100821, end: 20100822
  7. REVLIMID [Suspect]
     Dosage: 15 MILLIGRAM
     Route: 048
     Dates: start: 20100803, end: 20100803

REACTIONS (5)
  - PLATELET COUNT DECREASED [None]
  - INFECTION [None]
  - NEUROPATHY PERIPHERAL [None]
  - JAUNDICE [None]
  - NEUTROPHIL COUNT DECREASED [None]
